FAERS Safety Report 10560522 (Version 1)
Quarter: 2014Q4

REPORT INFORMATION
  Report Type: Spontaneous
  Country: US (occurrence: US)
  Receive Date: 20141103
  Receipt Date: 20141103
  Transmission Date: 20150529
  Serious: No
  Sender: FDA-Public Use
  Company Number: US-SA-2014SA044313

PATIENT
  Age: 17 Year
  Sex: Female
  Weight: 42.5 kg

DRUGS (3)
  1. LUMIZYME [Suspect]
     Active Substance: ALGLUCOSIDASE ALFA
     Indication: GLYCOGEN STORAGE DISEASE TYPE II
     Route: 042
  2. BENADRYL [Concomitant]
     Active Substance: DIPHENHYDRAMINE HYDROCHLORIDE
     Indication: PREMEDICATION
     Dosage: REPEATED AT 4 HOURS AND UP TO 24 HOURS
  3. IBUPROFEN. [Concomitant]
     Active Substance: IBUPROFEN
     Dosage: REPEATED AT 4 HOURS AND TAKEN UP TO 24 HOURS

REACTIONS (4)
  - Pain [Recovered/Resolved]
  - Rash pruritic [Recovered/Resolved]
  - Mobility decreased [Recovered/Resolved]
  - Paraesthesia [Recovered/Resolved]

NARRATIVE: CASE EVENT DATE: 201403
